FAERS Safety Report 18700253 (Version 1)
Quarter: 2021Q1

REPORT INFORMATION
  Report Type: Spontaneous
  Country: US (occurrence: US)
  Receive Date: 20210105
  Receipt Date: 20210105
  Transmission Date: 20210419
  Serious: Yes (Other)
  Sender: FDA-Public Use
  Company Number: US-009507513-2101USA000621

PATIENT
  Sex: Female

DRUGS (2)
  1. ALENDRONATE SODIUM. [Suspect]
     Active Substance: ALENDRONATE SODIUM
     Indication: OSTEOPOROSIS
     Dosage: DOSAGE INFORMATION: NOT REPORTED; AS PRESCRIBED AND IN A MANNER NORMALLY INTENDED; REPORTED AS: ALEN
     Route: 048
     Dates: start: 2002, end: 200804
  2. FOSAMAX [Suspect]
     Active Substance: ALENDRONATE SODIUM
     Indication: OSTEOPOROSIS
     Dosage: DOSAGE INFORMATION: NOT REPORTED; ^AS PRESCRIBED AND IN A MANNER NORMALLY INTENDED^
     Route: 048
     Dates: start: 2002, end: 200804

REACTIONS (2)
  - Femur fracture [Unknown]
  - Incorrect product administration duration [Unknown]

NARRATIVE: CASE EVENT DATE: 2002
